FAERS Safety Report 13632985 (Version 1)
Quarter: 2017Q2

REPORT INFORMATION
  Report Type: Spontaneous
  Country: US (occurrence: US)
  Receive Date: 20170531
  Receipt Date: 20170531
  Transmission Date: 20170830
  Serious: No
  Sender: FDA-Public Use
  Company Number: US-ASTELLAS-1495075

PATIENT
  Sex: Male

DRUGS (23)
  1. TARCEVA [Suspect]
     Active Substance: ERLOTINIB HYDROCHLORIDE
     Indication: LUNG NEOPLASM MALIGNANT
     Route: 048
     Dates: start: 20120606
  2. METFORMIN HYDROCHLORIDE. [Concomitant]
     Active Substance: METFORMIN HYDROCHLORIDE
     Route: 065
  3. ZIRGAN [Concomitant]
     Active Substance: GANCICLOVIR
  4. OMEPRAZOLE. [Concomitant]
     Active Substance: OMEPRAZOLE
  5. LORAZEPAM. [Concomitant]
     Active Substance: LORAZEPAM
  6. LEVOFLOXACIN. [Concomitant]
     Active Substance: LEVOFLOXACIN
  7. CARAFATE [Concomitant]
     Active Substance: SUCRALFATE
  8. MIRTAZAPINE. [Concomitant]
     Active Substance: MIRTAZAPINE
  9. ZYFLO [Concomitant]
     Active Substance: ZILEUTON
  10. MAG-OX [Concomitant]
     Active Substance: MAGNESIUM OXIDE
  11. CRESTOR [Concomitant]
     Active Substance: ROSUVASTATIN CALCIUM
  12. METALAX [Concomitant]
  13. HYDROCORTISONE. [Concomitant]
     Active Substance: HYDROCORTISONE
  14. FISH OIL [Concomitant]
     Active Substance: FISH OIL
  15. FOLIC ACID. [Concomitant]
     Active Substance: FOLIC ACID
  16. BISOPROLOL FUMARATE. [Concomitant]
     Active Substance: BISOPROLOL FUMARATE
  17. GLUCOSAMINE CHONDROITIN COMPLEX [Concomitant]
     Active Substance: CHONDROITIN SULFATE (BOVINE)\GLUCOSAMINE HYDROCHLORIDE
  18. TYLENOL WITH CODEINE [Concomitant]
     Active Substance: ACETAMINOPHEN\CODEINE PHOSPHATE
  19. CILOSTAZOL. [Concomitant]
     Active Substance: CILOSTAZOL
  20. TRICOR [Concomitant]
     Active Substance: FENOFIBRATE
  21. NASONEX [Concomitant]
     Active Substance: MOMETASONE FUROATE
  22. LOSARTAN POTASSIUM. [Concomitant]
     Active Substance: LOSARTAN POTASSIUM
  23. FLOVENT HFA [Concomitant]
     Active Substance: FLUTICASONE PROPIONATE

REACTIONS (1)
  - Drug ineffective [Unknown]
